FAERS Safety Report 5153488-5 (Version None)
Quarter: 2006Q4

REPORT INFORMATION
  Report Type: 
  Country: None (occurrence: None)
  Receive Date: 20061117
  Receipt Date: 20061006
  Transmission Date: 20070319
  Serious: Yes (Death, Life-Threatening, Hospitalization, Other)
  Sender: FDA-Public Use
  Company Number: ES-ABBOTT-06P-144-0346311-00

PATIENT
  Sex: Female

DRUGS (6)
  1. HUMIRA [Suspect]
     Indication: RHEUMATOID ARTHRITIS
     Route: 058
     Dates: start: 20050101, end: 20061001
  2. ANASMA [Concomitant]
     Indication: ASTHMA
     Route: 055
  3. NOVOMIX 30 [Concomitant]
     Indication: DIABETES MELLITUS
     Route: 058
  4. ANLODIPINO [Concomitant]
     Indication: HYPERTENSION
     Route: 048
  5. TORASEMIDA [Concomitant]
     Indication: HYPERTENSION
     Route: 048
  6. STATINS [Concomitant]
     Indication: HYPERCHOLESTEROLAEMIA
     Route: 048

REACTIONS (10)
  - CHOLESTASIS [None]
  - CONVULSION [None]
  - DRUG INEFFECTIVE [None]
  - GENERAL PHYSICAL HEALTH DETERIORATION [None]
  - LYMPHADENOPATHY [None]
  - PULMONARY GRANULOMA [None]
  - RENAL FAILURE [None]
  - STATUS EPILEPTICUS [None]
  - TUBERCULOSIS [None]
  - VENOUS THROMBOSIS LIMB [None]
